FAERS Safety Report 5124661-7 (Version None)
Quarter: 2006Q4

REPORT INFORMATION
  Report Type: 
  Country: None (occurrence: None)
  Receive Date: 20061011
  Receipt Date: 20060927
  Transmission Date: 20070319
  Serious: Yes (Other)
  Sender: FDA-Public Use
  Company Number: PHBS2006JP15055

PATIENT
  Age: 10 Year
  Sex: Female

DRUGS (1)
  1. TEGRETOL [Suspect]
     Indication: COMPLEX PARTIAL SEIZURES
     Route: 048

REACTIONS (1)
  - PETIT MAL EPILEPSY [None]
